FAERS Safety Report 11198781 (Version 1)
Quarter: 2015Q2

REPORT INFORMATION
  Report Type: Spontaneous
  Country: GB (occurrence: GB)
  Receive Date: 20150618
  Receipt Date: 20150618
  Transmission Date: 20150821
  Serious: Yes (Disabling)
  Sender: FDA-Public Use
  Company Number: GB-SUN PHARMACEUTICAL INDUSTRIES LTD-2015RR-98821

PATIENT

DRUGS (2)
  1. RISPERIDONE. [Suspect]
     Active Substance: RISPERIDONE
     Indication: RESTLESSNESS
     Dosage: 250MCG AT 6PM AND AS NECESSARY
     Route: 002
     Dates: start: 20140613, end: 20140623
  2. RISPERIDONE. [Suspect]
     Active Substance: RISPERIDONE
     Indication: RESTLESSNESS
     Dosage: INCREASED DUE TO INADEQUATE RESPONSE
     Route: 002
     Dates: start: 20140624, end: 20141016

REACTIONS (2)
  - Sedation [Recovered/Resolved]
  - Fall [Unknown]

NARRATIVE: CASE EVENT DATE: 20140707
